FAERS Safety Report 7802539-5 (Version None)
Quarter: 2011Q4

REPORT INFORMATION
  Report Type: 
  Country: None (occurrence: None)
  Receive Date: 20111007
  Receipt Date: 20111004
  Transmission Date: 20120403
  Serious: Yes (Other)
  Sender: FDA-Public Use
  Company Number: US-TEVA-303635USA

PATIENT
  Age: 71 Year
  Sex: Female

DRUGS (8)
  1. CALCIUM CARBONATE [Concomitant]
  2. SERTRALINE HYDROCHLORIDE [Concomitant]
     Dates: start: 20000101
  3. ALPRAZOLAM [Concomitant]
     Indication: SLEEP DISORDER
     Dates: start: 20000101
  4. CANNABIS SATIVA (HEMP HEARTS) [Concomitant]
     Indication: WEIGHT DECREASED
  5. ANASTROZOLE [Suspect]
     Dates: start: 20110201, end: 20110101
  6. ASPIRIN [Concomitant]
  7. ALENDRONATE SODIUM [Concomitant]
  8. ANTIINFLAMMATORY/ANTIRHEUMATIC PRODUCTS [Concomitant]

REACTIONS (22)
  - BALANCE DISORDER [None]
  - DYSGRAPHIA [None]
  - HALLUCINATION, AUDITORY [None]
  - WEIGHT INCREASED [None]
  - SNEEZING [None]
  - VASODILATATION [None]
  - FALL [None]
  - MOOD SWINGS [None]
  - ARTHRALGIA [None]
  - CARDIAC DISORDER [None]
  - DEAFNESS [None]
  - MEMORY IMPAIRMENT [None]
  - FEELING ABNORMAL [None]
  - GAIT DISTURBANCE [None]
  - COUGH [None]
  - SWELLING [None]
  - CEREBROVASCULAR DISORDER [None]
  - MENTAL IMPAIRMENT [None]
  - IMPAIRED DRIVING ABILITY [None]
  - RASH [None]
  - ABDOMINAL DISTENSION [None]
  - ANGER [None]
